FAERS Safety Report 21903716 (Version 1)
Quarter: 2023Q1

REPORT INFORMATION
  Report Type: Spontaneous
  Country: IT (occurrence: IT)
  Receive Date: 20230124
  Receipt Date: 20230124
  Transmission Date: 20230417
  Serious: Yes (Other)
  Sender: FDA-Public Use
  Company Number: None

PATIENT
  Age: 48 Year
  Sex: Male

DRUGS (1)
  1. IBUPROFEN [Suspect]
     Active Substance: IBUPROFEN
     Indication: Oropharyngeal pain
     Dosage: UNK, QD
     Route: 048
     Dates: start: 20221128, end: 20221128

REACTIONS (4)
  - Malaise [Recovering/Resolving]
  - Palatal oedema [Recovering/Resolving]
  - Erythema [Recovering/Resolving]
  - Angioedema [Recovering/Resolving]

NARRATIVE: CASE EVENT DATE: 20221129
